FAERS Safety Report 4896133-6 (Version None)
Quarter: 2006Q1

REPORT INFORMATION
  Report Type: 
  Country: None (occurrence: None)
  Receive Date: 20060131
  Receipt Date: 20060126
  Transmission Date: 20060701
  Serious: Yes (Death, Life-Threatening)
  Sender: FDA-Public Use
  Company Number: US-RB-2688-2006

PATIENT
  Sex: Female
  Weight: 54.48 kg

DRUGS (7)
  1. SUBOXONE [Suspect]
     Indication: DRUG DEPENDENCE
     Route: 060
     Dates: start: 20060117, end: 20060117
  2. ATORVASTATIN CALCIUM [Concomitant]
     Dates: end: 20060117
  3. LANSOPRAZOLE [Concomitant]
     Dates: end: 20060117
  4. ALPRAZOLAM [Concomitant]
     Dates: end: 20060117
  5. PAROXETINE HYDROCHLORIDE [Concomitant]
     Dates: end: 20060117
  6. LEVOTHYROXINE SODIUM [Concomitant]
     Dates: end: 20060117
  7. PREDNISONE [Concomitant]
     Dates: end: 20060117

REACTIONS (1)
  - CARDIAC ARREST [None]
